FAERS Safety Report 10836902 (Version 1)
Quarter: 2015Q1

REPORT INFORMATION
  Report Type: Spontaneous
  Country: US (occurrence: None)
  Receive Date: 20150218
  Receipt Date: 20150218
  Transmission Date: 20150721
  Serious: Yes (Hospitalization)
  Sender: FDA-Public Use
  Company Number: NSR_01830_2015

PATIENT
  Age: 41 Year
  Sex: Male

DRUGS (1)
  1. BACLOFEN. [Suspect]
     Active Substance: BACLOFEN
     Indication: PRODUCT USED FOR UNKNOWN INDICATION
     Route: 048

REACTIONS (30)
  - Dysarthria [None]
  - Fall [None]
  - Grimacing [None]
  - Agitation [None]
  - Tachycardia [None]
  - Pupil fixed [None]
  - Hypotension [None]
  - Toxicity to various agents [None]
  - Delirium [None]
  - Serotonin syndrome [None]
  - Corneal reflex decreased [None]
  - Areflexia [None]
  - Confusional state [None]
  - Hypertension [None]
  - Partner stress [None]
  - Hypothermia [None]
  - Hyperreflexia [None]
  - Hypotonia [None]
  - Nystagmus [None]
  - Suicide attempt [None]
  - Impaired driving ability [None]
  - Hyperhidrosis [None]
  - Drug withdrawal syndrome [None]
  - Ataxia [None]
  - Exposure via ingestion [None]
  - Vomiting [None]
  - Depressed level of consciousness [None]
  - Muscle contractions involuntary [None]
  - Intentional overdose [None]
  - Muscle twitching [None]
